FAERS Safety Report 16112196 (Version 2)
Quarter: 2019Q2

REPORT INFORMATION
  Report Type: Spontaneous
  Country: US (occurrence: US)
  Receive Date: 20190325
  Receipt Date: 20190415
  Transmission Date: 20190711
  Serious: No
  Sender: FDA-Public Use
  Company Number: US-BAYER-2019-058511

PATIENT
  Sex: Female

DRUGS (1)
  1. MIRENA [Suspect]
     Active Substance: LEVONORGESTREL
     Dosage: 20 MCG/24HR, CONT
     Route: 015
     Dates: start: 20181218

REACTIONS (5)
  - Eczema [Recovered/Resolved]
  - Fungal skin infection [Recovered/Resolved]
  - Pruritus [Recovered/Resolved]
  - Skin irritation [Not Recovered/Not Resolved]
  - Breast inflammation [Recovered/Resolved]

NARRATIVE: CASE EVENT DATE: 2019
